FAERS Safety Report 9691301 (Version 1)
Quarter: 2013Q4

REPORT INFORMATION
  Report Type: Spontaneous
  Country: US (occurrence: US)
  Receive Date: 20131115
  Receipt Date: 20131115
  Transmission Date: 20140711
  Serious: Yes (Other)
  Sender: FDA-Public Use
  Company Number: US-TEVA-444609USA

PATIENT
  Sex: Female

DRUGS (1)
  1. AMPHETAMINE W/DEXTROAMPHETAMINE [Suspect]
     Dosage: 30 MILLIGRAM DAILY;

REACTIONS (3)
  - Withdrawal syndrome [Unknown]
  - Drug abuse [Unknown]
  - Incorrect dose administered [Unknown]
